FAERS Safety Report 7843446-1 (Version None)
Quarter: 2011Q4

REPORT INFORMATION
  Report Type: 
  Country: None (occurrence: None)
  Receive Date: 20111025
  Receipt Date: 20111017
  Transmission Date: 20120403
  Serious: Yes (Death, Hospitalization)
  Sender: FDA-Public Use
  Company Number: GB-ROCHE-1002393

PATIENT
  Sex: Female

DRUGS (2)
  1. LUCENTIS [Suspect]
     Indication: PRODUCT USED FOR UNKNOWN INDICATION
     Route: 050
     Dates: start: 20110801
  2. LUCENTIS [Suspect]
     Route: 050
     Dates: start: 20110801

REACTIONS (3)
  - DEATH [None]
  - CLOSTRIDIAL INFECTION [None]
  - PAIN IN EXTREMITY [None]
